FAERS Safety Report 6438489-9 (Version None)
Quarter: 2009Q4

REPORT INFORMATION
  Report Type: 
  Country: None (occurrence: None)
  Receive Date: 20091110
  Receipt Date: 20091029
  Transmission Date: 20100525
  Serious: Yes (Hospitalization, Other)
  Sender: FDA-Public Use
  Company Number: 2009AP004373

PATIENT
  Age: 58 Year
  Sex: Female

DRUGS (4)
  1. PAROXETINE HCL [Suspect]
  2. CLOZARIL [Suspect]
     Indication: SCHIZOPHRENIA
     Dosage: 575 MG;PO;QD; 275 MG;PO; 75 MG;QD
     Route: 048
     Dates: end: 20070130
  3. CLOZARIL [Suspect]
     Indication: SCHIZOPHRENIA
     Dosage: 575 MG;PO;QD; 275 MG;PO; 75 MG;QD
     Route: 048
     Dates: start: 19980412
  4. SULPIRIDE (SULPIRIDE) [Concomitant]

REACTIONS (16)
  - ABNORMAL BEHAVIOUR [None]
  - DEHYDRATION [None]
  - DRUG LEVEL ABOVE THERAPEUTIC [None]
  - EATING DISORDER [None]
  - MALAISE [None]
  - MENTAL IMPAIRMENT [None]
  - NEUROLEPTIC MALIGNANT SYNDROME [None]
  - NEUTROPHIL COUNT DECREASED [None]
  - ORTHOSTATIC HYPOTENSION [None]
  - SEDATION [None]
  - SEPSIS [None]
  - SOMNOLENCE [None]
  - UNRESPONSIVE TO STIMULI [None]
  - URINE ANALYSIS ABNORMAL [None]
  - VAGINAL HAEMORRHAGE [None]
  - WHITE BLOOD CELL COUNT INCREASED [None]
